FAERS Safety Report 9635054 (Version 1)
Quarter: 2013Q4

REPORT INFORMATION
  Report Type: Spontaneous
  Country: US (occurrence: US)
  Receive Date: 20131021
  Receipt Date: 20131021
  Transmission Date: 20140711
  Serious: No
  Sender: FDA-Public Use
  Company Number: US-PURDUE-USA-2013-0102772

PATIENT
  Age: 57 Year
  Sex: Female

DRUGS (3)
  1. BUTRANS [Suspect]
     Indication: INTERVERTEBRAL DISC DEGENERATION
     Dosage: 10 MCG/HR, WEEKLY
     Route: 062
     Dates: start: 20130518, end: 20130518
  2. CYMBALTA [Concomitant]
     Indication: NEURALGIA
     Dosage: 30 MG, DAILY
     Route: 048
     Dates: start: 201305
  3. HYDROCODONE [Concomitant]
     Indication: PAIN
     Dosage: UP TO 5 TIMES, PRN
     Route: 048

REACTIONS (7)
  - Application site scab [Unknown]
  - Application site pain [Recovered/Resolved]
  - Application site pruritus [Recovered/Resolved]
  - Application site paraesthesia [Unknown]
  - Application site rash [Recovered/Resolved]
  - Application site erosion [Unknown]
  - Application site hypersensitivity [Unknown]
